FAERS Safety Report 12209444 (Version 2)
Quarter: 2016Q2

REPORT INFORMATION
  Report Type: Spontaneous
  Country: US (occurrence: US)
  Receive Date: 20160324
  Receipt Date: 20160418
  Transmission Date: 20160815
  Serious: Yes (Other)
  Sender: FDA-Public Use
  Company Number: US-TAKEDA-2016TUS004899

PATIENT
  Age: 33 Year
  Sex: Female
  Weight: 59.86 kg

DRUGS (1)
  1. ENTYVIO [Suspect]
     Active Substance: VEDOLIZUMAB
     Indication: COLITIS ULCERATIVE
     Dosage: UNK, Q8WEEKS
     Route: 042
     Dates: start: 20150115

REACTIONS (3)
  - Pregnancy [Unknown]
  - Cerebral small vessel ischaemic disease [Unknown]
  - Sensory loss [Recovering/Resolving]

NARRATIVE: CASE EVENT DATE: 20160216
